FAERS Safety Report 10236361 (Version 1)
Quarter: 2014Q2

REPORT INFORMATION
  Report Type: Spontaneous
  Country: DE (occurrence: DE)
  Receive Date: 20140613
  Receipt Date: 20140613
  Transmission Date: 20141212
  Serious: Yes (Hospitalization)
  Sender: FDA-Public Use
  Company Number: DE-ACTAVIS-2014-12333

PATIENT
  Age: 59 Year
  Sex: Female

DRUGS (5)
  1. PAROXETINE (UNKNOWN) [Suspect]
     Indication: PRODUCT USED FOR UNKNOWN INDICATION
     Dosage: 40 MG, DAILY
     Route: 048
     Dates: end: 20130622
  2. PAROXETINE (UNKNOWN) [Suspect]
     Dosage: 20 MG, DAILY
     Route: 048
     Dates: start: 20130623
  3. AMITRIPTYLINE [Suspect]
     Indication: PRODUCT USED FOR UNKNOWN INDICATION
     Dosage: 25 MG, DAILY
     Route: 048
     Dates: end: 20130618
  4. TRAMADOL (UNKNOWN) [Suspect]
     Indication: BACK PAIN
     Dosage: 50 MG, DAILY
     Route: 048
     Dates: start: 20130615, end: 20130618
  5. HALOPERIDOL [Concomitant]
     Indication: PRODUCT USED FOR UNKNOWN INDICATION
     Dosage: UNK
     Route: 065
     Dates: end: 20130708

REACTIONS (5)
  - Delirium [Recovered/Resolved]
  - Restlessness [Recovered/Resolved]
  - Hallucination [Recovered/Resolved]
  - Disturbance in attention [Recovered/Resolved]
  - Depressed mood [Recovered/Resolved]
